FAERS Safety Report 4551766-1 (Version None)
Quarter: 2005Q1

REPORT INFORMATION
  Report Type: 
  Country: None (occurrence: None)
  Receive Date: 20050113
  Receipt Date: 20030820
  Transmission Date: 20050727
  Serious: Yes (Hospitalization)
  Sender: FDA-Public Use
  Company Number: FR-GLAXOSMITHKLINE-B0307118A

PATIENT
  Age: 74 Year
  Sex: Female
  Weight: 75 kg

DRUGS (8)
  1. AVANDIA [Suspect]
     Indication: DIABETES MELLITUS NON-INSULIN-DEPENDENT
     Dosage: 4MG PER DAY
     Route: 048
     Dates: start: 20030510, end: 20030520
  2. STAGID [Concomitant]
     Dosage: 2000MG PER DAY
     Route: 048
  3. CORENITEC [Concomitant]
  4. LOGIMAX [Concomitant]
  5. AMLOR [Concomitant]
     Dosage: 5MG PER DAY
     Route: 048
  6. HYTACAND [Concomitant]
     Route: 048
  7. NITRODERM [Concomitant]
  8. IMOVANE [Concomitant]

REACTIONS (3)
  - ATRIAL FIBRILLATION [None]
  - DYSPNOEA [None]
  - PULMONARY OEDEMA [None]
